FAERS Safety Report 25970690 (Version 3)
Quarter: 2025Q4

REPORT INFORMATION
  Report Type: Spontaneous
  Country: RU (occurrence: RU)
  Receive Date: 20251028
  Receipt Date: 20251225
  Transmission Date: 20260118
  Serious: Yes (Death)
  Sender: ROCHE
  Company Number: RU-ROCHE-10000420480

PATIENT
  Sex: Male

DRUGS (3)
  1. ZELBORAF [Suspect]
     Active Substance: VEMURAFENIB
     Indication: Colorectal cancer
     Dosage: ZELBORAF FOR NEARLY HALF A YEAR AND WAS TAKEN AS THE SECOND LINE THERAPY
  2. RITUXIMAB [Concomitant]
     Active Substance: RITUXIMAB
  3. DOXYCYCLINE [Concomitant]
     Active Substance: DOXYCYCLINE

REACTIONS (1)
  - Large intestinal haemorrhage [Fatal]
